FAERS Safety Report 12302757 (Version 1)
Quarter: 2016Q2

REPORT INFORMATION
  Report Type: Spontaneous
  Country: SE (occurrence: SE)
  Receive Date: 20160425
  Receipt Date: 20160425
  Transmission Date: 20160815
  Serious: Yes (Hospitalization)
  Sender: FDA-Public Use
  Company Number: PHHY2016SE051689

PATIENT
  Age: 80 Year
  Sex: Female

DRUGS (1)
  1. QUETIAPINE ? 1 A PHARMA [Suspect]
     Active Substance: QUETIAPINE
     Indication: GENERALISED ANXIETY DISORDER
     Route: 048
     Dates: start: 20160401, end: 20160401

REACTIONS (2)
  - Urticaria [Recovered/Resolved]
  - Joint swelling [Recovered/Resolved]

NARRATIVE: CASE EVENT DATE: 20160401
